FAERS Safety Report 4501420-7 (Version None)
Quarter: 2004Q4

REPORT INFORMATION
  Report Type: 
  Country: None (occurrence: None)
  Receive Date: 20041110
  Receipt Date: 20041102
  Transmission Date: 20050328
  Serious: Yes (Death)
  Sender: FDA-Public Use
  Company Number: 208435

PATIENT
  Age: 29 Year
  Sex: Male
  Weight: 120.2 kg

DRUGS (8)
  1. AVASTIN [Suspect]
     Indication: RECTAL CANCER RECURRENT
     Dosage: 614 MG Q2W, INTRAVENOUS
     Route: 042
     Dates: start: 20040420, end: 20040812
  2. CAMPTOSAR [Concomitant]
  3. FLUOROURACIL [Concomitant]
  4. LEUKOVORIN (LEUCOVORIN CALCIUM) [Concomitant]
  5. ZOFRAN [Concomitant]
  6. DECADRON [Concomitant]
  7. NEUPOGEN [Concomitant]
  8. EMEND (APPEPITANT) [Concomitant]

REACTIONS (9)
  - ARRHYTHMIA [None]
  - BLOOD PRESSURE INCREASED [None]
  - BODY TEMPERATURE INCREASED [None]
  - LOSS OF CONSCIOUSNESS [None]
  - NAUSEA [None]
  - PLATELET COUNT DECREASED [None]
  - SUDDEN CARDIAC DEATH [None]
  - VOMITING [None]
  - WHITE BLOOD CELL COUNT DECREASED [None]
